FAERS Safety Report 6201108-0 (Version None)
Quarter: 2009Q2

REPORT INFORMATION
  Report Type: 
  Country: None (occurrence: None)
  Receive Date: 20090526
  Receipt Date: 20090514
  Transmission Date: 20091009
  Serious: Yes (Hospitalization)
  Sender: FDA-Public Use
  Company Number: CN-BAYER-200919335GPV

PATIENT
  Age: 72 Year
  Sex: Female

DRUGS (1)
  1. NIMOTOP [Suspect]
     Indication: DEMENTIA
     Dosage: TOTAL DAILY DOSE: 1500 MG  UNIT DOSE: 30 MG
     Route: 048
     Dates: start: 20080416, end: 20080416

REACTIONS (8)
  - CONJUNCTIVAL HYPERAEMIA [None]
  - DYSPHASIA [None]
  - DYSPHORIA [None]
  - DYSPNOEA [None]
  - FLUSHING [None]
  - HEART RATE INCREASED [None]
  - HYPOTENSION [None]
  - RESTLESSNESS [None]
